FAERS Safety Report 4664100-3 (Version None)
Quarter: 2005Q2

REPORT INFORMATION
  Report Type: 
  Country: None (occurrence: None)
  Receive Date: 20050516
  Receipt Date: 20050504
  Transmission Date: 20051028
  Serious: Yes (Hospitalization)
  Sender: FDA-Public Use
  Company Number: 2005071146

PATIENT
  Age: 79 Year
  Sex: Male

DRUGS (8)
  1. BENADRYL [Suspect]
     Indication: SEDATION
     Dosage: ORAL
     Route: 048
     Dates: start: 20050413
  2. DISOPYRAMIDE PHOSPHATE [Concomitant]
  3. DIGOXIN [Concomitant]
  4. ASPIRIN [Concomitant]
  5. PSYLLIUM (PSYLLIUM) [Concomitant]
  6. DIAZEPAM [Concomitant]
  7. FENTANYL [Concomitant]
  8. MIDAZOLAM HCL [Concomitant]

REACTIONS (1)
  - CONFUSIONAL STATE [None]
